FAERS Safety Report 5615074-X (Version None)
Quarter: 2008Q1

REPORT INFORMATION
  Report Type: 
  Country: None (occurrence: None)
  Receive Date: 20080131
  Receipt Date: 20080115
  Transmission Date: 20080703
  Serious: Yes (Hospitalization)
  Sender: FDA-Public Use
  Company Number: 2007JP005305

PATIENT
  Age: 76 Year
  Sex: Female

DRUGS (11)
  1. PROGRAF [Suspect]
     Indication: RHEUMATOID ARTHRITIS
     Dosage: 1 MG, UID/QD, ORAL
     Route: 048
     Dates: start: 20060801, end: 20071113
  2. PREDNISOLONE [Concomitant]
  3. NORVASC [Concomitant]
  4. DIOVAN [Concomitant]
  5. MEVALOTIN (PRAVASTATIN SOIDUM) [Concomitant]
  6. ACTONEL (RISEDONATE SODIUM) [Concomitant]
  7. MOBIC [Concomitant]
  8. OMEPRAZOLE [Concomitant]
  9. DISOPYRAMIDE [Concomitant]
  10. FLUVOXAMINE MALEATE [Concomitant]
  11. LORAZEPAM [Concomitant]

REACTIONS (2)
  - CONDITION AGGRAVATED [None]
  - INTERSTITIAL LUNG DISEASE [None]
